FAERS Safety Report 8272056-X (Version None)
Quarter: 2012Q2

REPORT INFORMATION
  Report Type: 
  Country: None (occurrence: None)
  Receive Date: 20120410
  Receipt Date: 20120403
  Transmission Date: 20120825
  Serious: Yes (Hospitalization)
  Sender: FDA-Public Use
  Company Number: US-US-EMD SERONO, INC.-7124074

PATIENT
  Sex: Male

DRUGS (2)
  1. TRILIPIX [Concomitant]
     Indication: BLOOD CHOLESTEROL INCREASED
  2. REBIF [Suspect]
     Indication: MULTIPLE SCLEROSIS
     Route: 058
     Dates: start: 20110825

REACTIONS (6)
  - INFLUENZA LIKE ILLNESS [None]
  - SOMNOLENCE [None]
  - INJECTION SITE PAIN [None]
  - INJECTION SITE IRRITATION [None]
  - THYROID NEOPLASM [None]
  - GOITRE [None]
